FAERS Safety Report 9199300 (Version 1)
Quarter: 2013Q1

REPORT INFORMATION
  Report Type: Spontaneous
  Country: IT (occurrence: None)
  Receive Date: 20130326
  Receipt Date: 20130326
  Transmission Date: 20140127
  Serious: Yes (Other)
  Sender: FDA-Public Use
  Company Number: AUR-APL-2013-02376

PATIENT
  Sex: Male

DRUGS (7)
  1. LAMIVUDINE [Suspect]
     Indication: HIV INFECTION
  2. NELFINAVIR MESILATE [Suspect]
  3. RIBAVIRIN (RIBAVIRIN) [Suspect]
     Indication: HEPATITIS C
     Dosage: 1 D
  4. ATAZANAVIR\RITONAVIR [Suspect]
     Indication: HIV INFECTION
  5. PEGINTERFERON ALFA-2A [Suspect]
     Indication: HEPATITIS C
     Dosage: 1 WK
     Dates: start: 200604
  6. RITONAVIR (RITONAVIR) [Suspect]
     Indication: HIV INFECTION
  7. ZIDOVUDINE (ZIDOVUDINE) [Suspect]
     Indication: HIV INFECTION

REACTIONS (4)
  - Neutropenia [None]
  - Thrombocytopenia [None]
  - Aspartate aminotransferase increased [None]
  - Alanine aminotransferase increased [None]
